FAERS Safety Report 7511281-X (Version None)
Quarter: 2011Q2

REPORT INFORMATION
  Report Type: 
  Country: None (occurrence: None)
  Receive Date: 20110531
  Receipt Date: 20110518
  Transmission Date: 20111010
  Serious: Yes (Other)
  Sender: FDA-Public Use
  Company Number: JP-JNJFOC-20110511837

PATIENT
  Sex: Female

DRUGS (7)
  1. LEVOFLOXACIN [Suspect]
     Indication: INFECTIVE SPONDYLITIS
     Route: 048
     Dates: start: 20110517, end: 20110517
  2. CELECOXIB [Concomitant]
     Route: 048
  3. OLMESARTAN MEDOXOMIL [Concomitant]
     Route: 048
  4. AMLODIPINE [Concomitant]
     Route: 048
  5. PRAVASTATIN [Concomitant]
     Route: 048
  6. MUCOSTA [Concomitant]
     Route: 048
  7. PLAVIX [Concomitant]
     Route: 048

REACTIONS (2)
  - ANAPHYLACTIC SHOCK [None]
  - DERMATITIS ALLERGIC [None]
